FAERS Safety Report 5699216-6 (Version None)
Quarter: 2008Q2

REPORT INFORMATION
  Report Type: 
  Country: None (occurrence: None)
  Receive Date: 20080408
  Receipt Date: 20080328
  Transmission Date: 20081010
  Serious: Yes (Life-Threatening, Other)
  Sender: FDA-Public Use
  Company Number: APP200800241

PATIENT

DRUGS (1)
  1. HEPARIN SODIUM INJECTION [Suspect]
     Indication: SURGERY
     Dates: start: 20080313

REACTIONS (2)
  - DRUG INEFFECTIVE [None]
  - PHARMACEUTICAL PRODUCT COMPLAINT [None]
